FAERS Safety Report 21252770 (Version 1)
Quarter: 2022Q3

REPORT INFORMATION
  Report Type: Spontaneous
  Country: ES (occurrence: ES)
  Receive Date: 20220825
  Receipt Date: 20220825
  Transmission Date: 20221027
  Serious: Yes (Hospitalization, Congenital Anomaly, Other)
  Sender: FDA-Public Use
  Company Number: ES-Eisai Medical Research-EC-2022-120751

PATIENT

DRUGS (7)
  1. LACOSAMIDE [Suspect]
     Active Substance: LACOSAMIDE
     Indication: Foetal exposure during pregnancy
     Dosage: 200 MILLIGRAM, TWO TIMES A DAY
     Route: 064
  2. LEVETIRACETAM [Suspect]
     Active Substance: LEVETIRACETAM
     Indication: Foetal exposure during pregnancy
     Dosage: 4000 MILLIGRAM, ONCE A DAY
     Route: 064
  3. VALPROIC ACID [Suspect]
     Active Substance: VALPROIC ACID
     Indication: Foetal exposure during pregnancy
     Dosage: 4800 MILLIGRAM, ONCE A DAY
     Route: 064
  4. BRIVARACETAM [Suspect]
     Active Substance: BRIVARACETAM
     Indication: Foetal exposure during pregnancy
     Dosage: 100 MILLIGRAM, TWO TIMES A DAY
     Route: 064
  5. MIDAZOLAM [Suspect]
     Active Substance: MIDAZOLAM
     Indication: Foetal exposure during pregnancy
     Dosage: 12 MILLILITER, EVERY HOUR
     Route: 065
  6. PERAMPANEL [Suspect]
     Active Substance: PERAMPANEL
     Indication: Foetal exposure during pregnancy
     Dosage: 12 MILLIGRAM (FREQUENCY UNKNOWN )
     Route: 064
  7. PROPOFOL [Suspect]
     Active Substance: PROPOFOL
     Indication: Foetal exposure during pregnancy
     Dosage: 15 MILLILITER, EVERY HOUR
     Route: 064

REACTIONS (5)
  - Patent ductus arteriosus [Unknown]
  - Intestinal atresia [Unknown]
  - Pulmonary haemorrhage [Unknown]
  - Coagulopathy [Unknown]
  - Foetal exposure during pregnancy [Unknown]
